FAERS Safety Report 17375728 (Version 3)
Quarter: 2021Q3

REPORT INFORMATION
  Report Type: Report from Study
  Country: JP (occurrence: JP)
  Receive Date: 20200206
  Receipt Date: 20210804
  Transmission Date: 20211014
  Serious: Yes (Other)
  Sender: FDA-Public Use
  Company Number: JP-ROCHE-2372274

PATIENT
  Sex: Female

DRUGS (19)
  1. ERIBULIN MESILATE [Suspect]
     Active Substance: ERIBULIN
     Route: 041
     Dates: start: 20190607, end: 20190830
  2. ERIBULIN MESILATE [Suspect]
     Active Substance: ERIBULIN
     Route: 041
     Dates: start: 20200403, end: 20200403
  3. TRASTUZUMAB. [Suspect]
     Active Substance: TRASTUZUMAB
     Route: 041
     Dates: start: 20180518, end: 20180831
  4. TRASTUZUMAB. [Suspect]
     Active Substance: TRASTUZUMAB
     Route: 041
     Dates: start: 20180928, end: 20181221
  5. TRASTUZUMAB. [Suspect]
     Active Substance: TRASTUZUMAB
     Route: 041
     Dates: start: 20200605, end: 20200605
  6. ERIBULIN MESILATE [Suspect]
     Active Substance: ERIBULIN
     Indication: BREAST CANCER
     Route: 041
     Dates: start: 20180216, end: 20180216
  7. ERIBULIN MESILATE [Suspect]
     Active Substance: ERIBULIN
     Route: 041
     Dates: start: 20180309, end: 20180420
  8. TRASTUZUMAB. [Suspect]
     Active Substance: TRASTUZUMAB
     Route: 041
     Dates: start: 20210108
  9. ERIBULIN MESILATE [Suspect]
     Active Substance: ERIBULIN
     Route: 041
     Dates: start: 20191011, end: 20191213
  10. ERIBULIN MESILATE [Suspect]
     Active Substance: ERIBULIN
     Route: 041
     Dates: start: 20190118, end: 20190301
  11. ERIBULIN MESILATE [Suspect]
     Active Substance: ERIBULIN
     Route: 041
     Dates: start: 20200110, end: 20200221
  12. TRASTUZUMAB. [Suspect]
     Active Substance: TRASTUZUMAB
     Route: 041
     Dates: start: 20200110, end: 20200403
  13. ERIBULIN MESILATE [Suspect]
     Active Substance: ERIBULIN
     Route: 041
     Dates: start: 20190329, end: 20190510
  14. TRASTUZUMAB. [Suspect]
     Active Substance: TRASTUZUMAB
     Route: 041
     Dates: start: 20190118, end: 20191213
  15. TRASTUZUMAB. [Suspect]
     Active Substance: TRASTUZUMAB
     Route: 041
     Dates: start: 20200626, end: 20201211
  16. TRASTUZUMAB. [Suspect]
     Active Substance: TRASTUZUMAB
     Indication: BREAST CANCER METASTATIC
     Route: 041
     Dates: start: 20180216, end: 20180216
  17. TRASTUZUMAB. [Suspect]
     Active Substance: TRASTUZUMAB
     Route: 041
     Dates: start: 20180309, end: 20180420
  18. ERIBULIN MESILATE [Suspect]
     Active Substance: ERIBULIN
     Route: 041
     Dates: start: 20180608, end: 20181221
  19. ERIBULIN MESILATE [Suspect]
     Active Substance: ERIBULIN
     Route: 041
     Dates: start: 20200605, end: 20200626

REACTIONS (1)
  - Febrile neutropenia [Recovered/Resolved]

NARRATIVE: CASE EVENT DATE: 20180223
